FAERS Safety Report 5772847-0 (Version None)
Quarter: 2008Q2

REPORT INFORMATION
  Report Type: 
  Country: None (occurrence: None)
  Receive Date: 20080611
  Receipt Date: 20080604
  Transmission Date: 20081010
  Serious: Yes (Other)
  Sender: FDA-Public Use
  Company Number: 163-21880-08020348

PATIENT
  Age: 65 Year
  Sex: Female
  Weight: 88 kg

DRUGS (5)
  1. REVLIMID [Suspect]
     Indication: MULTIPLE MYELOMA
     Dosage: 15 MG, QD, ORAL; 10 MG, FOR 3 MONTHS, ORAL
     Route: 048
     Dates: start: 20070119, end: 20080123
  2. REVLIMID [Suspect]
     Indication: MULTIPLE MYELOMA
     Dosage: 15 MG, QD, ORAL; 10 MG, FOR 3 MONTHS, ORAL
     Route: 048
     Dates: end: 20080502
  3. LEVAQUIN [Concomitant]
  4. IVIG (IMMUNOGLOBULIN) [Concomitant]
  5. SYNTHROID [Concomitant]

REACTIONS (14)
  - AUTOIMMUNE THYROIDITIS [None]
  - BRONCHITIS [None]
  - CHILLS [None]
  - CONSTIPATION [None]
  - DIARRHOEA [None]
  - DISEASE PROGRESSION [None]
  - FATIGUE [None]
  - HYPERTHYROIDISM [None]
  - HYPOTHYROIDISM [None]
  - PRODUCTIVE COUGH [None]
  - PYREXIA [None]
  - RESPIRATORY SYNCYTIAL VIRUS SEROLOGY POSITIVE [None]
  - SPUTUM CULTURE POSITIVE [None]
  - THYROID FUNCTION TEST ABNORMAL [None]
